FAERS Safety Report 4571745-8 (Version None)
Quarter: 2005Q1

REPORT INFORMATION
  Report Type: 
  Country: None (occurrence: None)
  Receive Date: 20050202
  Receipt Date: 20050202
  Transmission Date: 20050727
  Serious: Yes (Hospitalization)
  Sender: FDA-Public Use
  Company Number: None

PATIENT
  Age: 48 Year
  Sex: Male
  Weight: 60.782 kg

DRUGS (1)
  1. METHYLPREDNISOLONE [Suspect]
     Indication: GOUT
     Dosage: UD   ORAL
     Route: 048
     Dates: start: 20040922, end: 20040928

REACTIONS (7)
  - ASTHENIA [None]
  - BLOOD CREATINE PHOSPHOKINASE INCREASED [None]
  - DIFFICULTY IN WALKING [None]
  - HYPERTENSION [None]
  - MUSCULAR WEAKNESS [None]
  - MYOPATHY STEROID [None]
  - RENAL FAILURE CHRONIC [None]
